FAERS Safety Report 10204185 (Version 3)
Quarter: 2014Q3

REPORT INFORMATION
  Report Type: Spontaneous
  Country: US (occurrence: None)
  Receive Date: 20140527
  Receipt Date: 20140710
  Transmission Date: 20150326
  Serious: Yes (Death)
  Sender: FDA-Public Use
  Company Number: 2350665

PATIENT
  Age: 88 Year
  Sex: Female
  Weight: 91.65 kg

DRUGS (1)
  1. EPINEPHRINE. [Suspect]
     Active Substance: EPINEPHRINE
     Indication: CARDIO-RESPIRATORY ARREST

REACTIONS (3)
  - Needle issue [None]
  - Wrong technique in drug usage process [None]
  - Syringe issue [None]

NARRATIVE: CASE EVENT DATE: 20140508
